FAERS Safety Report 6740713-X (Version None)
Quarter: 2010Q2

REPORT INFORMATION
  Report Type: 
  Country: None (occurrence: None)
  Receive Date: 20100521
  Receipt Date: 20100513
  Transmission Date: 20101027
  Serious: No
  Sender: FDA-Public Use
  Company Number: 009195

PATIENT

DRUGS (2)
  1. PLETAL [Suspect]
     Indication: CEREBRAL INFARCTION
     Dosage: 100 MG, BID, ORAL
     Route: 048
  2. ASPIRIN [Suspect]
     Dosage: 100 MG, QD, ORAL
     Route: 048

REACTIONS (1)
  - HAEMOTHORAX [None]
